FAERS Safety Report 20867342 (Version 1)
Quarter: 2022Q2

REPORT INFORMATION
  Report Type: Spontaneous
  Country: GB (occurrence: GB)
  Receive Date: 20220524
  Receipt Date: 20220524
  Transmission Date: 20220721
  Serious: Yes (Death, Other)
  Sender: FDA-Public Use
  Company Number: GB-MHRA-MED-202205061636399600-MWNVA

PATIENT
  Age: 53 Year
  Sex: Female
  Weight: 64 kg

DRUGS (5)
  1. APIXABAN [Suspect]
     Active Substance: APIXABAN
     Indication: Cerebrovascular accident
     Dosage: 5 MILLIGRAM, BID
     Dates: start: 20210901, end: 20220424
  2. ATORVASTATIN [Concomitant]
     Active Substance: ATORVASTATIN
     Dosage: UNK
  3. BISOPROLOL [Concomitant]
     Active Substance: BISOPROLOL
     Dosage: UNK
  4. RAMIPRIL [Concomitant]
     Active Substance: RAMIPRIL
     Dosage: UNK
  5. SPIRONOLACTONE [Concomitant]
     Active Substance: SPIRONOLACTONE
     Dosage: UNK

REACTIONS (3)
  - Cerebral haemorrhage [Fatal]
  - Brain stem haemorrhage [Fatal]
  - Circulatory collapse [Unknown]

NARRATIVE: CASE EVENT DATE: 20220423
